FAERS Safety Report 15074389 (Version 1)
Quarter: 2018Q2

REPORT INFORMATION
  Report Type: Spontaneous
  Country: JP (occurrence: JP)
  Receive Date: 20180627
  Receipt Date: 20180627
  Transmission Date: 20180711
  Serious: Yes (Other)
  Sender: FDA-Public Use
  Company Number: JP-GLAXOSMITHKLINE-JP2018JPN110384

PATIENT
  Age: 52 Year
  Sex: Female

DRUGS (2)
  1. ZINNAT [Suspect]
     Active Substance: CEFUROXIME AXETIL
     Indication: TONSILLITIS BACTERIAL
     Dosage: 250 MG, TID
     Route: 048
     Dates: start: 20180518, end: 20180522
  2. TRANSAMIN TABLETS [Concomitant]
     Dosage: UNK
     Dates: start: 20180518

REACTIONS (3)
  - Generalised erythema [Recovered/Resolved]
  - Swelling [Recovered/Resolved]
  - Lupus-like syndrome [Recovered/Resolved]

NARRATIVE: CASE EVENT DATE: 20180522
